FAERS Safety Report 17386500 (Version 2)
Quarter: 2020Q1

REPORT INFORMATION
  Report Type: Spontaneous
  Country: AU (occurrence: AU)
  Receive Date: 20200206
  Receipt Date: 20200213
  Transmission Date: 20200409
  Serious: Yes (Other)
  Sender: FDA-Public Use
  Company Number: AU-PFIZER INC-2020032877

PATIENT
  Age: 30 Year
  Sex: Female

DRUGS (1)
  1. CHAMPIX [Suspect]
     Active Substance: VARENICLINE TARTRATE
     Indication: SMOKING CESSATION THERAPY
     Dosage: UNK

REACTIONS (7)
  - Malaise [Unknown]
  - Daydreaming [Unknown]
  - Self-injurious ideation [Unknown]
  - Nausea [Unknown]
  - Nightmare [Unknown]
  - Drug ineffective [Unknown]
  - Feeling abnormal [Unknown]
